FAERS Safety Report 15889577 (Version 2)
Quarter: 2019Q1

REPORT INFORMATION
  Report Type: Spontaneous
  Country: US (occurrence: US)
  Receive Date: 20190130
  Receipt Date: 20190308
  Transmission Date: 20190417
  Serious: Yes (Life-Threatening, Hospitalization)
  Sender: FDA-Public Use
  Company Number: US-STRIDES ARCOLAB LIMITED-2019SP000845

PATIENT
  Age: 47 Year
  Sex: Female
  Weight: 45 kg

DRUGS (3)
  1. ERGOCALCIFEROL. [Suspect]
     Active Substance: ERGOCALCIFEROL
     Indication: HYPOTHYROIDISM
     Dosage: UNK
     Route: 065
     Dates: start: 2015
  2. ERGOCALCIFEROL. [Suspect]
     Active Substance: ERGOCALCIFEROL
     Indication: VITAMIN D DECREASED
  3. ERGOCALCIFEROL. [Suspect]
     Active Substance: ERGOCALCIFEROL
     Indication: FATIGUE
     Dosage: 1.25 MG, ONCE A WEEK, CAPSULE
     Route: 065
     Dates: start: 20190112

REACTIONS (27)
  - Chest pain [Unknown]
  - Fatigue [Unknown]
  - Thirst [Unknown]
  - Headache [Unknown]
  - Stress [Unknown]
  - Arrhythmia [Unknown]
  - Dysphagia [Unknown]
  - Pharyngeal oedema [Unknown]
  - Malaise [Unknown]
  - Nausea [Unknown]
  - Hypertension [Unknown]
  - Deafness [Unknown]
  - Paraesthesia [Unknown]
  - Chills [Unknown]
  - Musculoskeletal stiffness [Unknown]
  - Body temperature decreased [Unknown]
  - Muscle spasms [Unknown]
  - Abdominal pain upper [Unknown]
  - Dysgeusia [Unknown]
  - Lethargy [Unknown]
  - Heart rate increased [Unknown]
  - Muscular weakness [Unknown]
  - Vision blurred [Unknown]
  - Dyspnoea [Unknown]
  - Hypersensitivity [Unknown]
  - Swollen tongue [Unknown]
  - Neck pain [Unknown]

NARRATIVE: CASE EVENT DATE: 201901
